FAERS Safety Report 7298691-3 (Version None)
Quarter: 2011Q1

REPORT INFORMATION
  Report Type: 
  Country: None (occurrence: None)
  Receive Date: 20110209
  Receipt Date: 20110127
  Transmission Date: 20110831
  Serious: Yes (Hospitalization)
  Sender: FDA-Public Use
  Company Number: FR-1184847

PATIENT
  Age: 77 Year
  Sex: Male

DRUGS (1)
  1. TRAVATAN [Suspect]
     Indication: GLAUCOMA
     Dosage: (OPHTHALMIC)
     Route: 047
     Dates: start: 20100101

REACTIONS (1)
  - SUBDURAL HAEMATOMA [None]
